FAERS Safety Report 7355706-1 (Version None)
Quarter: 2011Q1

REPORT INFORMATION
  Report Type: 
  Country: None (occurrence: None)
  Receive Date: 20110316
  Receipt Date: 20110311
  Transmission Date: 20110831
  Serious: Yes (Hospitalization)
  Sender: FDA-Public Use
  Company Number: BR-ABBOTT-11P-020-0711192-00

PATIENT
  Sex: Female
  Weight: 69 kg

DRUGS (7)
  1. METILDIGOXIN [Concomitant]
     Indication: CARDIAC FAILURE
     Route: 048
  2. HUMIRA [Suspect]
     Indication: RHEUMATOID ARTHRITIS
     Route: 058
     Dates: start: 20071001
  3. ATACAND HCT [Concomitant]
     Indication: HYPERTENSION
     Route: 048
  4. BRIMONIDINE TARTRATE [Concomitant]
     Indication: GLAUCOMA
     Route: 047
  5. PHENPROCOUMON [Concomitant]
     Indication: ANTICOAGULANT THERAPY
     Dosage: 0.5 IN 24 HOURS
     Route: 048
  6. BRINZOLAMIDE [Concomitant]
     Indication: GLAUCOMA
     Route: 047
  7. LATANOPROST [Concomitant]
     Indication: GLAUCOMA
     Route: 047

REACTIONS (2)
  - PROTEIN URINE ABSENT [None]
  - THYROID DISORDER [None]
